FAERS Safety Report 20304807 (Version 2)
Quarter: 2022Q2

REPORT INFORMATION
  Report Type: Spontaneous
  Country: US (occurrence: US)
  Receive Date: 20220106
  Receipt Date: 20220420
  Transmission Date: 20220721
  Serious: Yes (Other)
  Sender: FDA-Public Use
  Company Number: US-HERON THERAPEUTICS, INC-HRTX-2021-000704

PATIENT
  Age: 72 Year
  Sex: Female

DRUGS (1)
  1. ZYNRELEF [Suspect]
     Active Substance: BUPIVACAINE\MELOXICAM
     Indication: Knee arthroplasty
     Dosage: 14CC, SINGLE
     Route: 026

REACTIONS (4)
  - Post procedural drainage [Unknown]
  - Bloody discharge [Unknown]
  - Wound dehiscence [Unknown]
  - Suture related complication [Unknown]

NARRATIVE: CASE EVENT DATE: 20211020
